FAERS Safety Report 6244571-1 (Version None)
Quarter: 2009Q2

REPORT INFORMATION
  Report Type: 
  Country: None (occurrence: None)
  Receive Date: 20090625
  Receipt Date: 20090619
  Transmission Date: 20091009
  Serious: Yes (Other)
  Sender: FDA-Public Use
  Company Number: US-BAYER-200920590NA

PATIENT
  Age: 20 Year
  Sex: Female
  Weight: 73 kg

DRUGS (2)
  1. YAZ [Suspect]
     Indication: ACNE
     Route: 048
     Dates: start: 20080901, end: 20081010
  2. ASPIRIN [Concomitant]

REACTIONS (5)
  - CEREBROVASCULAR ACCIDENT [None]
  - DYSARTHRIA [None]
  - FACIAL PALSY [None]
  - HYPOAESTHESIA [None]
  - MIGRAINE [None]
